FAERS Safety Report 8251952-3 (Version None)
Quarter: 2012Q2

REPORT INFORMATION
  Report Type: 
  Country: None (occurrence: None)
  Receive Date: 20120402
  Receipt Date: 20120321
  Transmission Date: 20120825
  Serious: No
  Sender: FDA-Public Use
  Company Number: US-B.I. PHARMACEUTICALS,INC./RIDGEFIELD-2012-BP-03886BP

PATIENT
  Sex: Female

DRUGS (8)
  1. PRADAXA [Suspect]
     Indication: ATRIAL FIBRILLATION
     Dosage: 300 MG
     Route: 048
     Dates: start: 20120115
  2. CALTRATE + D [Concomitant]
     Indication: SUPPLEMENTATION THERAPY
  3. CLORAZEPATE DIPOTASSIUM [Concomitant]
     Indication: ANXIETY
  4. TYLENOL [Concomitant]
     Indication: BACK PAIN
     Dosage: 4000 MG
     Route: 048
  5. CALCIUM CARBONATE [Concomitant]
     Indication: SUPPLEMENTATION THERAPY
     Route: 048
  6. MIRALAX [Concomitant]
     Indication: CONSTIPATION
     Route: 048
  7. ASPIRIN [Concomitant]
     Indication: CARDIAC DISORDER
     Dosage: 81 MG
     Route: 048
     Dates: start: 20120115
  8. GABAPENTIN [Concomitant]
     Indication: NEURALGIA
     Dosage: 100 MG
     Route: 048

REACTIONS (3)
  - VISION BLURRED [None]
  - HEART RATE DECREASED [None]
  - FEELING ABNORMAL [None]
